FAERS Safety Report 11195543 (Version 1)
Quarter: 2015Q2

REPORT INFORMATION
  Report Type: Spontaneous
  Country: GB (occurrence: None)
  Receive Date: 20150615
  Receipt Date: 20150615
  Transmission Date: 20150821
  Serious: Yes (Death, Life-Threatening, Hospitalization, Other)
  Sender: FDA-Public Use
  Company Number: None

PATIENT
  Age: 78 Year
  Sex: Female

DRUGS (14)
  1. LEVOTHYROXIN SODIUM [Concomitant]
  2. COLECALCIFEROL/CALCIUM CARBONATE [Concomitant]
     Active Substance: CALCIUM CARBONATE\CHOLECALCIFEROL
  3. QUININE SULFATE. [Concomitant]
     Active Substance: QUININE SULFATE
  4. SOLIFENACIN [Concomitant]
     Active Substance: SOLIFENACIN
  5. METFORMIN [Concomitant]
     Active Substance: METFORMIN HYDROCHLORIDE
  6. PARACETAMOL [Concomitant]
     Active Substance: ACETAMINOPHEN
  7. SIMVASTATIN. [Concomitant]
     Active Substance: SIMVASTATIN
  8. NITROFURANTOIN. [Concomitant]
     Active Substance: NITROFURANTOIN
  9. VALSARTAN. [Concomitant]
     Active Substance: VALSARTAN
  10. ASPIRIN. [Concomitant]
     Active Substance: ASPIRIN
  11. INDAPAMIDE. [Concomitant]
     Active Substance: INDAPAMIDE
  12. GLICLAZIDE 40MG [Suspect]
     Active Substance: GLICLAZIDE
     Indication: BLOOD GLUCOSE INCREASED
     Dosage: 2 PILLS TWICE DAILY
     Dates: start: 20150430, end: 20150511
  13. DILTAIAZEM [Concomitant]
  14. MOVELAT GEL [Concomitant]

REACTIONS (12)
  - Balance disorder [None]
  - Cerebrovascular accident [None]
  - Weight decreased [None]
  - Aortic dissection [None]
  - Pericardial haemorrhage [None]
  - Pallor [None]
  - General physical health deterioration [None]
  - Hypertension [None]
  - Dizziness [None]
  - Epistaxis [None]
  - Hyperhidrosis [None]
  - Skin atrophy [None]

NARRATIVE: CASE EVENT DATE: 20150528
